FAERS Safety Report 4618495-7 (Version None)
Quarter: 2005Q1

REPORT INFORMATION
  Report Type: 
  Country: None (occurrence: None)
  Receive Date: 20050323
  Receipt Date: 20050301
  Transmission Date: 20050727
  Serious: Yes (Life-Threatening)
  Sender: FDA-Public Use
  Company Number: GBS050316850

PATIENT
  Sex: Female

DRUGS (3)
  1. ZYPREXA [Suspect]
     Indication: SCHIZOPHRENIA
     Dosage: 20 MG DAY
  2. QUETIAPINE FUMARATE [Concomitant]
  3. DIAZEPAM [Concomitant]

REACTIONS (3)
  - CARDIAC ARREST [None]
  - INJURY ASPHYXIATION [None]
  - RESPIRATORY ARREST [None]
